FAERS Safety Report 20335434 (Version 2)
Quarter: 2022Q1

REPORT INFORMATION
  Report Type: Other
  Country: US (occurrence: None)
  Receive Date: 20220114
  Receipt Date: 20220324
  Transmission Date: 20220423
  Serious: No
  Sender: FDA-Public Use
  Company Number: US-ROCHE-3000663

PATIENT
  Age: 62 Year
  Sex: Female
  Weight: 77.180 kg

DRUGS (3)
  1. OCREVUS [Suspect]
     Active Substance: OCRELIZUMAB
     Indication: Multiple sclerosis
     Dosage: VIAL?DATE OF TREATMENT: 06/APR/2020, 04/MAY/2020, 02/NOV/2020, 03/MAY/2021
     Route: 042
     Dates: start: 20200406
  2. REBIF [Concomitant]
     Active Substance: INTERFERON BETA-1A
  3. CLINDAMYCIN [Concomitant]
     Active Substance: CLINDAMYCIN

REACTIONS (3)
  - Herpes zoster [Unknown]
  - Urinary tract infection [Not Recovered/Not Resolved]
  - Toothache [Not Recovered/Not Resolved]

NARRATIVE: CASE EVENT DATE: 20210801
